FAERS Safety Report 23747922 (Version 2)
Quarter: 2024Q3

REPORT INFORMATION
  Report Type: Spontaneous
  Country: US (occurrence: None)
  Receive Date: 20240416
  Receipt Date: 20240703
  Transmission Date: 20241017
  Serious: Yes (Other)
  Sender: ASTRAZENECA
  Company Number: 2024A085252

PATIENT
  Age: 70 Year
  Sex: Female

DRUGS (2)
  1. NEXIUM [Suspect]
     Active Substance: ESOMEPRAZOLE MAGNESIUM
     Route: 048
     Dates: start: 2003, end: 20240404
  2. CARDIZEM [Suspect]
     Active Substance: DILTIAZEM HYDROCHLORIDE

REACTIONS (7)
  - Chronic kidney disease [Unknown]
  - Renal cyst [Unknown]
  - Oropharyngeal discomfort [Unknown]
  - Gingival bleeding [Unknown]
  - Pollakiuria [Unknown]
  - Paraesthesia [Unknown]
  - Drug ineffective [Unknown]

NARRATIVE: CASE EVENT DATE: 20230101
